FAERS Safety Report 6114016-0 (Version None)
Quarter: 2009Q1

REPORT INFORMATION
  Report Type: 
  Country: None (occurrence: None)
  Receive Date: 20090312
  Receipt Date: 20090107
  Transmission Date: 20090719
  Serious: No
  Sender: FDA-Public Use
  Company Number: US-ABBOTT-09P-163-0496319-00

PATIENT
  Sex: Female

DRUGS (1)
  1. LUPRON DEPOT [Suspect]
     Indication: ENDOMETRIOSIS
     Route: 030
     Dates: start: 20080201

REACTIONS (3)
  - BLOOD FOLLICLE STIMULATING HORMONE NORMAL [None]
  - MENSTRUAL DISORDER [None]
  - METRORRHAGIA [None]
